FAERS Safety Report 7936498-1 (Version None)
Quarter: 2011Q4

REPORT INFORMATION
  Report Type: 
  Country: None (occurrence: None)
  Receive Date: 20111123
  Receipt Date: 20110830
  Transmission Date: 20120403
  Serious: No
  Sender: FDA-Public Use
  Company Number: US-BAYER-2011-086042

PATIENT
  Sex: Male
  Weight: 98 kg

DRUGS (7)
  1. OXYCODONE HCL [Concomitant]
  2. SKELAXIN [Concomitant]
  3. RITALIN [Concomitant]
  4. LITHIUM CARBONATE [Interacting]
  5. NOROTON [Concomitant]
  6. ALEVE (CAPLET) [Suspect]
     Indication: BACK PAIN
     Dosage: 2 DF, QID
     Route: 048
  7. VANEX [Concomitant]

REACTIONS (1)
  - SENSATION OF FOREIGN BODY [None]
